FAERS Safety Report 6044409-1 (Version None)
Quarter: 2009Q1

REPORT INFORMATION
  Report Type: 
  Country: None (occurrence: None)
  Receive Date: 20090115
  Receipt Date: 20090115
  Transmission Date: 20090719
  Serious: Yes (Hospitalization)
  Sender: FDA-Public Use
  Company Number: None

PATIENT
  Sex: Male
  Weight: 89.8 kg

DRUGS (2)
  1. CASODEX [Suspect]
     Dosage: 4500 MG
  2. ZOLADEX [Suspect]
     Dosage: 10.6 MG

REACTIONS (1)
  - PULMONARY EMBOLISM [None]
